FAERS Safety Report 7130241-4 (Version None)
Quarter: 2010Q4

REPORT INFORMATION
  Report Type: 
  Country: None (occurrence: None)
  Receive Date: 20101201
  Receipt Date: 20101129
  Transmission Date: 20110411
  Serious: Yes (Life-Threatening)
  Sender: FDA-Public Use
  Company Number: PHHY2010CA81017

PATIENT
  Sex: Female

DRUGS (1)
  1. ACLASTA [Suspect]
     Indication: OSTEOPOROSIS
     Dosage: 5MG
     Route: 042
     Dates: start: 20100219

REACTIONS (3)
  - ASTHENIA [None]
  - BALANCE DISORDER [None]
  - FEELING ABNORMAL [None]
